FAERS Safety Report 9702013 (Version 1)
Quarter: 2013Q4

REPORT INFORMATION
  Report Type: Spontaneous
  Country: DE (occurrence: DE)
  Receive Date: 20131121
  Receipt Date: 20131121
  Transmission Date: 20140711
  Serious: Yes (Other)
  Sender: FDA-Public Use
  Company Number: DE-BAYER-2013-140225

PATIENT
  Age: 43 Year
  Sex: 0

DRUGS (1)
  1. BETAFERON [Suspect]
     Indication: MULTIPLE SCLEROSIS
     Dosage: 250 ?G, UNK
     Route: 058
     Dates: start: 20130910, end: 20131102

REACTIONS (1)
  - Injection site necrosis [Unknown]
